FAERS Safety Report 6138464-8 (Version None)
Quarter: 2009Q1

REPORT INFORMATION
  Report Type: 
  Country: None (occurrence: None)
  Receive Date: 20090331
  Receipt Date: 20090324
  Transmission Date: 20090719
  Serious: Yes (Hospitalization)
  Sender: FDA-Public Use
  Company Number: JP-BRISTOL-MYERS SQUIBB COMPANY-14564769

PATIENT
  Age: 63 Year
  Sex: Female

DRUGS (13)
  1. CARBIDOPA + LEVODOPA [Suspect]
     Route: 048
  2. ARIMIDEX [Concomitant]
  3. BUFFERIN [Concomitant]
  4. LIPITOR [Concomitant]
  5. EXCELASE [Concomitant]
  6. ENALAPRIL MALEATE [Concomitant]
  7. DEPAS [Concomitant]
  8. CEROCRAL [Concomitant]
  9. TAKEPRON [Concomitant]
  10. TOLEDOMIN [Concomitant]
  11. ADALAT [Concomitant]
  12. TERNELIN [Concomitant]
  13. URSO 250 [Concomitant]

REACTIONS (1)
  - DIABETES MELLITUS [None]
